FAERS Safety Report 6204574-X (Version None)
Quarter: 2009Q2

REPORT INFORMATION
  Report Type: 
  Country: None (occurrence: None)
  Receive Date: 20090527
  Receipt Date: 20090518
  Transmission Date: 20091009
  Serious: Yes (Other)
  Sender: FDA-Public Use
  Company Number: JP-PFIZER INC-2009212856

PATIENT
  Age: 72 Year

DRUGS (6)
  1. SELARA [Suspect]
     Dosage: 25 MG, UNK
     Dates: end: 20090511
  2. BLOPRESS [Concomitant]
     Route: 048
  3. ADALAT [Concomitant]
     Route: 048
  4. TENORMIN [Concomitant]
     Route: 048
  5. NITOROL [Concomitant]
  6. BUFFERIN [Concomitant]
     Route: 048

REACTIONS (1)
  - INTERSTITIAL LUNG DISEASE [None]
